FAERS Safety Report 13609167 (Version 2)
Quarter: 2017Q2

REPORT INFORMATION
  Report Type: Report from Study
  Country: None (occurrence: CA)
  Receive Date: 20170602
  Receipt Date: 20170608
  Transmission Date: 20170830
  Serious: Yes (Other)
  Sender: FDA-Public Use
  Company Number: CA-ABBVIE-17P-028-1995893-00

PATIENT
  Age: 25 Year
  Sex: Female
  Weight: 46.31 kg

DRUGS (3)
  1. MODERIBA [Suspect]
     Active Substance: RIBAVIRIN
     Route: 048
     Dates: start: 20170606
  2. MODERIBA [Suspect]
     Active Substance: RIBAVIRIN
     Indication: HEPATITIS C
     Dosage: AM DOSE:  600 MG; PM DOSE: 400 MG.
     Route: 048
     Dates: start: 20170419, end: 201706
  3. HOLKIRA PAK [Suspect]
     Active Substance: DASABUVIR\OMBITASVIR\PARITAPREVIR\RITONAVIR
     Indication: HEPATITIS C
     Dosage: TWO 12.5/75/50 MG/DAY AND ONE 250MG TAB 2X/DAY
     Route: 048
     Dates: start: 20170419

REACTIONS (3)
  - Anxiety [Unknown]
  - Suicidal ideation [Not Recovered/Not Resolved]
  - Disturbance in attention [Unknown]

NARRATIVE: CASE EVENT DATE: 20170427
